FAERS Safety Report 8152582 (Version 3)
Quarter: 2014Q2

REPORT INFORMATION
  Report Type: Spontaneous
  Country: US (occurrence: US)
  Receive Date: 20110922
  Receipt Date: 20140425
  Transmission Date: 20141212
  Serious: Yes (Other)
  Sender: FDA-Public Use
  Company Number: US-ASTRAZENECA-2011SE26279

PATIENT
  Age: 46 Year
  Sex: Female
  Weight: 74.8 kg

DRUGS (9)
  1. SEROQUEL [Suspect]
     Indication: BIPOLAR I DISORDER
     Route: 048
  2. SEROQUEL [Suspect]
     Indication: BIPOLAR I DISORDER
     Route: 048
     Dates: start: 2008, end: 201104
  3. SEROQUEL [Suspect]
     Indication: BIPOLAR I DISORDER
     Route: 048
  4. SEROQUEL [Suspect]
     Indication: BIPOLAR I DISORDER
     Route: 048
  5. NEXIUM [Suspect]
     Route: 065
  6. METOPROLOL TARTRATE [Suspect]
     Indication: BLOOD PRESSURE ABNORMAL
     Route: 065
     Dates: start: 2008
  7. BLOOD PRESSURE MEDICATION [Concomitant]
  8. LAMICTAL [Concomitant]
     Indication: AFFECTIVE DISORDER
     Dates: start: 2013
  9. SABAXONE [Concomitant]
     Indication: PAIN MANAGEMENT
     Dosage: 8/2 MG, TWICE A DAY
     Dates: start: 2012

REACTIONS (5)
  - Spinal fracture [Unknown]
  - Tachyphrenia [Not Recovered/Not Resolved]
  - Post-traumatic stress disorder [Unknown]
  - Insomnia [Not Recovered/Not Resolved]
  - Drug dose omission [Unknown]
